FAERS Safety Report 5044076-X (Version None)
Quarter: 2006Q2

REPORT INFORMATION
  Report Type: 
  Country: None (occurrence: None)
  Receive Date: 20060629
  Receipt Date: 20060620
  Transmission Date: 20061013
  Serious: Yes (Other)
  Sender: FDA-Public Use
  Company Number: CHNY2006DE01855

PATIENT
  Sex: Male

DRUGS (4)
  1. NICOTINELL LOZENGE [Suspect]
     Indication: SMOKING CESSATION THERAPY
     Dosage: 4-5 LOZENGES DAILY; ORAL
     Route: 048
     Dates: start: 20060601, end: 20060601
  2. ACETYLSALICYLIC ACID SRT [Concomitant]
  3. ATORVASTATIN CALCIUM [Concomitant]
  4. METOPROLOL TARTRATE [Concomitant]

REACTIONS (6)
  - BLOOD PRESSURE DECREASED [None]
  - EYE SWELLING [None]
  - OEDEMA MUCOSAL [None]
  - PERIPHERAL VASCULAR DISORDER [None]
  - RASH GENERALISED [None]
  - SWELLING FACE [None]
